FAERS Safety Report 25737578 (Version 2)
Quarter: 2025Q3

REPORT INFORMATION
  Report Type: Report from Study
  Country: EU (occurrence: EU)
  Receive Date: 20250828
  Receipt Date: 20250918
  Transmission Date: 20251021
  Serious: Yes (Other)
  Sender: GENMAB
  Company Number: EU-ABBVIE-6418480

PATIENT
  Age: 56 Year
  Sex: Male

DRUGS (5)
  1. EPCORITAMAB [Suspect]
     Active Substance: EPCORITAMAB
     Indication: Diffuse large B-cell lymphoma
     Dosage: C1D1 - PRIMING DOSE
     Route: 058
     Dates: start: 20250722, end: 20250722
  2. EPCORITAMAB [Suspect]
     Active Substance: EPCORITAMAB
     Dosage: C1D8 - INTERMEDIATE DOSE
     Route: 058
     Dates: start: 20250729, end: 20250729
  3. EPCORITAMAB [Suspect]
     Active Substance: EPCORITAMAB
     Dosage: 0.16 MILLIGRAM, WEEKLY
     Route: 058
     Dates: start: 20250805, end: 20250805
  4. EPCORITAMAB [Suspect]
     Active Substance: EPCORITAMAB
     Dosage: 0.16 MILLIGRAM, WEEKLY
     Route: 058
     Dates: start: 20250818
  5. EPCORITAMAB [Suspect]
     Active Substance: EPCORITAMAB
     Dosage: 48 MILLIGRAM, WEEKLY
     Route: 058

REACTIONS (3)
  - Pseudomonas infection [Recovered/Resolved]
  - Renal failure [Unknown]
  - Septic shock [Recovered/Resolved]

NARRATIVE: CASE EVENT DATE: 20250101
